FAERS Safety Report 7400592-4 (Version None)
Quarter: 2011Q2

REPORT INFORMATION
  Report Type: 
  Country: None (occurrence: None)
  Receive Date: 20110407
  Receipt Date: 20110329
  Transmission Date: 20111010
  Serious: Yes (Hospitalization)
  Sender: FDA-Public Use
  Company Number: TR-PFIZER INC-2011068978

PATIENT
  Age: 48 Year

DRUGS (3)
  1. SOMAVERT [Suspect]
     Indication: ACROMEGALY
     Dosage: 40 MG, UNK
  2. SANDOSTATIN [Concomitant]
     Dosage: 0.1 MG, 3X/DAY
  3. SOMATOLINE [Concomitant]
     Dosage: 129 MG, MONTHLY

REACTIONS (3)
  - CARDIOMEGALY [None]
  - ARRHYTHMIA [None]
  - MYOCARDIAL INFARCTION [None]
